FAERS Safety Report 14946732 (Version 1)
Quarter: 2018Q2

REPORT INFORMATION
  Report Type: Spontaneous
  Country: US (occurrence: US)
  Receive Date: 20180529
  Receipt Date: 20180529
  Transmission Date: 20180711
  Serious: Yes (Other)
  Sender: FDA-Public Use
  Company Number: US-SA-2018SA142226

PATIENT
  Age: 54 Year
  Sex: Female

DRUGS (19)
  1. BUSPAR [Concomitant]
     Active Substance: BUSPIRONE HYDROCHLORIDE
     Dosage: 15 MG
  2. AVONEX [Suspect]
     Active Substance: INTERFERON BETA-1A
     Indication: MULTIPLE SCLEROSIS
  3. LIPITOR [Concomitant]
     Active Substance: ATORVASTATIN CALCIUM
  4. SAVELLA [Concomitant]
     Active Substance: MILNACIPRAN HYDROCHLORIDE
  5. LEXAPRO [Concomitant]
     Active Substance: ESCITALOPRAM OXALATE
     Dosage: 20 MG
  6. AMPYRA [Suspect]
     Active Substance: DALFAMPRIDINE
     Indication: MULTIPLE SCLEROSIS
     Dosage: 10 MG, Q12H
     Route: 048
  7. COPAXONE [Concomitant]
     Active Substance: GLATIRAMER ACETATE
     Indication: MULTIPLE SCLEROSIS
     Dosage: UNK UNK, TIW
  8. FLEXERIL [CEFIXIME] [Concomitant]
     Dosage: 10 MG
  9. ADDERALL [Concomitant]
     Active Substance: AMPHETAMINE ASPARTATE\AMPHETAMINE SULFATE\DEXTROAMPHETAMINE SACCHARATE\DEXTROAMPHETAMINE SULFATE
  10. CALAN [Concomitant]
     Active Substance: VERAPAMIL HYDROCHLORIDE
     Dosage: 120 MG
  11. VOLTAREN DOLO [DICLOFENAC DIETHYLAMINE] [Concomitant]
     Dosage: 75 MG
  12. REQUIP [Concomitant]
     Active Substance: ROPINIROLE HYDROCHLORIDE
     Dosage: 5 MG
  13. RANITIDINE HCL [Concomitant]
     Active Substance: RANITIDINE HYDROCHLORIDE
  14. LORTAB [HYDROCODONE BITARTRATE;PARACETAMOL] [Concomitant]
  15. XANAX [Concomitant]
     Active Substance: ALPRAZOLAM
  16. AUBAGIO [Suspect]
     Active Substance: TERIFLUNOMIDE
  17. AMPYRA [Suspect]
     Active Substance: DALFAMPRIDINE
     Indication: GAIT DISTURBANCE
  18. NORCO [Concomitant]
     Active Substance: ACETAMINOPHEN\HYDROCODONE BITARTRATE
     Dosage: 7.5-325 MG UNK
  19. CHOLECALCIFEROL [Concomitant]
     Active Substance: CHOLECALCIFEROL
     Dosage: 50000 IU

REACTIONS (15)
  - Fall [Unknown]
  - Pain [Unknown]
  - Rotator cuff syndrome [Unknown]
  - Memory impairment [Unknown]
  - Contusion [Unknown]
  - Drug intolerance [Unknown]
  - Depression [Unknown]
  - Head injury [Unknown]
  - Asthenia [Unknown]
  - Headache [Unknown]
  - Arthroscopy [Unknown]
  - Limb injury [Unknown]
  - Decreased interest [Unknown]
  - Intervertebral disc protrusion [Unknown]
  - Gait disturbance [Unknown]
